FAERS Safety Report 25358359 (Version 4)
Quarter: 2025Q3

REPORT INFORMATION
  Report Type: Report from Study
  Country: PR (occurrence: PR)
  Receive Date: 20250526
  Receipt Date: 20250922
  Transmission Date: 20251021
  Serious: No
  Sender: MALLINCKRODT
  Company Number: PR-MALLINCKRODT-MNK202503137

PATIENT
  Age: 86 Year
  Sex: Male
  Weight: 56 kg

DRUGS (13)
  1. CORTICOTROPIN [Suspect]
     Active Substance: CORTICOTROPIN
     Indication: Rheumatoid arthritis
     Route: 058
     Dates: start: 20241125
  2. CORTICOTROPIN [Suspect]
     Active Substance: CORTICOTROPIN
     Indication: Rheumatoid arthritis
  3. ATORVASTATIN CALCIUM [Concomitant]
     Active Substance: ATORVASTATIN CALCIUM
  4. NORVASC [Concomitant]
     Active Substance: AMLODIPINE BESYLATE
     Route: 048
  5. LOSARTAN POTASSIUM [Concomitant]
     Active Substance: LOSARTAN POTASSIUM
     Route: 048
  6. NEURONTIN [Concomitant]
     Active Substance: GABAPENTIN
     Route: 048
  7. ORENCIA [Concomitant]
     Active Substance: ABATACEPT
     Route: 042
  8. RECON [Concomitant]
  9. METAXALONE [Concomitant]
     Active Substance: METAXALONE
     Route: 048
  10. VITAMIN D3 [Concomitant]
     Active Substance: CHOLECALCIFEROL
     Route: 048
  11. METRONIDAZOLE [Concomitant]
     Active Substance: METRONIDAZOLE
     Route: 048
  12. CIPROFLOXACIN HYDROCHLORIDE [Concomitant]
     Active Substance: CIPROFLOXACIN HYDROCHLORIDE
     Route: 048
  13. PROLIA [Concomitant]
     Active Substance: DENOSUMAB
     Route: 058

REACTIONS (11)
  - Pain [Not Recovered/Not Resolved]
  - Contusion [Unknown]
  - Gout [Unknown]
  - Burning sensation [Not Recovered/Not Resolved]
  - Erythema [Not Recovered/Not Resolved]
  - Pain in extremity [Not Recovered/Not Resolved]
  - Muscle spasms [Not Recovered/Not Resolved]
  - Fall [Not Recovered/Not Resolved]
  - Peripheral swelling [Not Recovered/Not Resolved]
  - Joint swelling [Unknown]
  - Product dose omission issue [Unknown]

NARRATIVE: CASE EVENT DATE: 20250530
